FAERS Safety Report 11145014 (Version 1)
Quarter: 2015Q2

REPORT INFORMATION
  Report Type: Spontaneous
  Country: US (occurrence: US)
  Receive Date: 20150526
  Receipt Date: 20150526
  Transmission Date: 20150821
  Serious: Yes (Hospitalization)
  Sender: FDA-Public Use
  Company Number: US-BEH-2015051289

PATIENT
  Sex: Female
  Weight: 45 kg

DRUGS (9)
  1. TYLENOL EXTRA STRENGTH [Concomitant]
     Active Substance: ACETAMINOPHEN
     Dosage: 500 MG TAB
     Route: 048
  2. MULTIVITAMINS [Concomitant]
     Active Substance: VITAMINS
     Dosage: 1 TAB DAILY
     Route: 048
  3. MELATONIN [Concomitant]
     Active Substance: MELATONIN
     Dosage: 2 TABS (6 MG) AT BED TIME
     Route: 048
  4. IVIG [Suspect]
     Active Substance: HUMAN IMMUNOGLOBULIN G
     Indication: IMMUNODEFICIENCY COMMON VARIABLE
     Dosage: STARTED IVIG IN NOV-2011
  5. LORATADINE. [Concomitant]
     Active Substance: LORATADINE
     Dosage: 1 TAB DAILY
     Route: 048
  6. DIPHENHYDRAMINE [Concomitant]
     Active Substance: DIPHENHYDRAMINE
     Indication: ANAPHYLACTIC REACTION
     Route: 048
  7. EPIPEN [Concomitant]
     Active Substance: EPINEPHRINE
     Indication: ANAPHYLACTIC REACTION
     Route: 030
  8. TRAZODONE [Concomitant]
     Active Substance: TRAZODONE HYDROCHLORIDE
     Dosage: 4 TABS (400 MG) AT BEDTIME
     Route: 047
  9. BUDESONIDE. [Concomitant]
     Active Substance: BUDESONIDE
     Dosage: 3 TABS (9 MG) DAILY
     Route: 048

REACTIONS (4)
  - Blood pressure increased [Unknown]
  - Thrombosis [Unknown]
  - Syncope [Unknown]
  - Dyspnoea [Unknown]
